FAERS Safety Report 6131733-7 (Version None)
Quarter: 2009Q1

REPORT INFORMATION
  Report Type: 
  Country: None (occurrence: None)
  Receive Date: 20090325
  Receipt Date: 20090323
  Transmission Date: 20090719
  Serious: Yes (Life-Threatening, Hospitalization, Other)
  Sender: FDA-Public Use
  Company Number: PHEH2008US09051

PATIENT
  Sex: Male
  Weight: 8.1 kg

DRUGS (1)
  1. TRILEPTAL [Suspect]
     Indication: CONVULSION
     Dosage: 35 MG, BID
     Route: 048
     Dates: start: 20080401, end: 20081001

REACTIONS (17)
  - ACIDOSIS [None]
  - CONVULSION [None]
  - DISCOMFORT [None]
  - ENDOTRACHEAL INTUBATION [None]
  - FEEDING DISORDER OF INFANCY OR EARLY CHILDHOOD [None]
  - GRAND MAL CONVULSION [None]
  - HYPOKALAEMIA [None]
  - HYPONATRAEMIA [None]
  - HYPOTENSION [None]
  - IRON DEFICIENCY ANAEMIA [None]
  - OTITIS MEDIA [None]
  - PNEUMONIA ASPIRATION [None]
  - PYREXIA [None]
  - RESPIRATORY FAILURE [None]
  - STATUS EPILEPTICUS [None]
  - STRIDOR [None]
  - WATER INTOXICATION [None]
